FAERS Safety Report 24339539 (Version 1)
Quarter: 2024Q3

REPORT INFORMATION
  Report Type: Spontaneous
  Country: US (occurrence: None)
  Receive Date: 20240918
  Receipt Date: 20240918
  Transmission Date: 20241017
  Serious: No
  Sender: Public
  Company Number: None

PATIENT
  Age: 58 Year
  Sex: Female
  Weight: 124.2 kg

DRUGS (11)
  1. TACROLIMUS [Suspect]
     Active Substance: TACROLIMUS
     Indication: Eczema eyelids
     Dosage: OTHER QUANTITY : 1 1;?FREQUENCY : AT BEDTIME;?
     Route: 061
     Dates: start: 20240630, end: 20240917
  2. IRBESARTAN [Concomitant]
     Active Substance: IRBESARTAN
  3. ZYRTEC [Concomitant]
     Active Substance: CETIRIZINE HYDROCHLORIDE
  4. SINGULAIR [Concomitant]
     Active Substance: MONTELUKAST SODIUM
  5. BUSPAR [Concomitant]
     Active Substance: BUSPIRONE HYDROCHLORIDE
  6. MAGNESIUM [Concomitant]
     Active Substance: MAGNESIUM
  7. VITAMIN D NOS [Concomitant]
     Active Substance: CHOLECALCIFEROL\ERGOCALCIFEROL
  8. NORVASC [Concomitant]
     Active Substance: AMLODIPINE BESYLATE
  9. inhaler^s [Concomitant]
  10. EPIPEN [Concomitant]
     Active Substance: EPINEPHRINE
  11. MAG GLYCINATE [Concomitant]

REACTIONS (7)
  - Application site pain [None]
  - Lacrimation increased [None]
  - Swelling of eyelid [None]
  - Photophobia [None]
  - Pain [None]
  - Pruritus [None]
  - Eyelid disorder [None]

NARRATIVE: CASE EVENT DATE: 20240917
